FAERS Safety Report 7561735-5 (Version None)
Quarter: 2011Q2

REPORT INFORMATION
  Report Type: 
  Country: None (occurrence: None)
  Receive Date: 20110621
  Receipt Date: 20101222
  Transmission Date: 20111010
  Serious: No
  Sender: FDA-Public Use
  Company Number: US-ASTRAZENECA-2010SE60567

PATIENT
  Age: 35 Year
  Sex: Female

DRUGS (4)
  1. SINGULAIR [Concomitant]
  2. ASTEPRO [Concomitant]
  3. CLARITIN [Concomitant]
  4. RHINOCORT [Suspect]
     Route: 045

REACTIONS (1)
  - BLOOD MERCURY ABNORMAL [None]
